FAERS Safety Report 8377402-4 (Version None)
Quarter: 2012Q2

REPORT INFORMATION
  Report Type: 
  Country: None (occurrence: None)
  Receive Date: 20120522
  Receipt Date: 20120512
  Transmission Date: 20120825
  Serious: Yes (Other)
  Sender: FDA-Public Use
  Company Number: US-JNJFOC-20120512800

PATIENT
  Sex: Female
  Weight: 72.58 kg

DRUGS (6)
  1. XARELTO [Suspect]
     Indication: ATRIAL FIBRILLATION
     Route: 048
     Dates: start: 20120508, end: 20120511
  2. LEVOTHYROXINE SODIUM [Concomitant]
     Indication: HYPOTHYROIDISM
     Route: 048
  3. PRADAXA [Concomitant]
  4. ATENOLOL [Concomitant]
     Indication: BLOOD PRESSURE
     Route: 048
  5. PROPAFENONE HYDROCHLORIDE [Concomitant]
     Indication: HEART RATE
     Route: 048
  6. AMLODIPINE BESYLATE [Concomitant]
     Indication: BLOOD PRESSURE
     Route: 048

REACTIONS (6)
  - DIZZINESS [None]
  - VERTIGO [None]
  - MALAISE [None]
  - FATIGUE [None]
  - ASTHENIA [None]
  - NAUSEA [None]
